FAERS Safety Report 18553873 (Version 2)
Quarter: 2021Q1

REPORT INFORMATION
  Report Type: Report from Study
  Country: MX (occurrence: MX)
  Receive Date: 20201127
  Receipt Date: 20210102
  Transmission Date: 20210419
  Serious: Yes (Other)
  Sender: FDA-Public Use
  Company Number: NVSC2020MX274114

PATIENT
  Age: 48 Year
  Sex: Male
  Weight: 84 kg

DRUGS (5)
  1. DASATINIB. [Concomitant]
     Active Substance: DASATINIB
     Indication: CHRONIC MYELOID LEUKAEMIA
     Dosage: 2 DF (IN MORNING AND AT NIGHT))
     Route: 048
     Dates: start: 2016
  2. TASIGNA [Suspect]
     Active Substance: NILOTINIB
     Indication: CHRONIC MYELOID LEUKAEMIA
     Dosage: 400 MG, Q12H
     Route: 048
     Dates: start: 20170612
  3. IMATINIB. [Suspect]
     Active Substance: IMATINIB MESYLATE
     Indication: CHRONIC MYELOID LEUKAEMIA
     Dosage: 200 MG, BID (IN THE MORNING AND AT NIGNT))
     Route: 048
     Dates: start: 201606, end: 201706
  4. TRAMADOL. [Concomitant]
     Active Substance: TRAMADOL
     Indication: PRODUCT USED FOR UNKNOWN INDICATION
     Dosage: UNK
     Route: 065
  5. TASIGNA [Suspect]
     Active Substance: NILOTINIB
     Dosage: 800 MG, QD  (200 MG IN THE MORNING AND IN NIGHT)
     Route: 048
     Dates: start: 20170617

REACTIONS (8)
  - Polymerase chain reaction [Recovered/Resolved]
  - Incorrect dose administered [Unknown]
  - Off label use [Unknown]
  - Dyspnoea [Recovered/Resolved]
  - Vomiting [Recovering/Resolving]
  - Intervertebral disc protrusion [Not Recovered/Not Resolved]
  - Dizziness [Recovering/Resolving]
  - Pain [Not Recovered/Not Resolved]

NARRATIVE: CASE EVENT DATE: 201410
